FAERS Safety Report 5802320-2 (Version None)
Quarter: 2008Q3

REPORT INFORMATION
  Report Type: 
  Country: None (occurrence: None)
  Receive Date: 20080707
  Receipt Date: 20080624
  Transmission Date: 20090109
  Serious: Yes (Death, Disabling)
  Sender: FDA-Public Use
  Company Number: JP-SANOFI-SYNTHELABO-F01200800339

PATIENT
  Sex: Male
  Weight: 70 kg

DRUGS (6)
  1. URINORM [Concomitant]
     Dosage: 50 MG
     Route: 048
     Dates: start: 20070807
  2. OMEPRAL [Concomitant]
     Indication: HAEMORRHAGE
     Dosage: 10 MG
     Route: 048
     Dates: start: 20070807, end: 20071002
  3. CINAL [Concomitant]
     Dosage: 3 MG
     Route: 048
     Dates: start: 20070807
  4. ALINAMIN F [Concomitant]
     Dosage: 25 MG
     Route: 048
     Dates: start: 20070807, end: 20071002
  5. CLOPIDOGREL [Suspect]
     Indication: CEREBRAL ISCHAEMIA
     Route: 048
     Dates: start: 20070816, end: 20070910
  6. MICARDIS [Concomitant]

REACTIONS (2)
  - PNEUMONIA [None]
  - RENAL IMPAIRMENT [None]
